FAERS Safety Report 24578180 (Version 1)
Quarter: 2024Q4

REPORT INFORMATION
  Report Type: Spontaneous
  Country: FR (occurrence: FR)
  Receive Date: 20241104
  Receipt Date: 20241104
  Transmission Date: 20250115
  Serious: Yes (Other)
  Sender: ABBVIE
  Company Number: None

PATIENT
  Age: 41 Year
  Sex: Female

DRUGS (41)
  1. SEVOFLURANE [Suspect]
     Active Substance: SEVOFLURANE
     Indication: General anaesthesia
     Dosage: UNK
     Route: 042
     Dates: start: 202010, end: 202010
  2. SEVOFLURANE [Suspect]
     Active Substance: SEVOFLURANE
     Indication: General anaesthesia
     Dosage: UNK
     Route: 042
     Dates: start: 202010, end: 202010
  3. SEVOFLURANE [Suspect]
     Active Substance: SEVOFLURANE
     Indication: General anaesthesia
     Dosage: UNK
     Route: 042
     Dates: start: 202010, end: 202010
  4. SEVOFLURANE [Suspect]
     Active Substance: SEVOFLURANE
     Indication: General anaesthesia
     Dosage: UNK
     Route: 042
     Dates: start: 202010, end: 202010
  5. PERFALGAN [Concomitant]
     Active Substance: ACETAMINOPHEN
     Indication: General anaesthesia
     Dosage: UNK
     Route: 042
     Dates: start: 202010, end: 202010
  6. PERFALGAN [Concomitant]
     Active Substance: ACETAMINOPHEN
     Indication: General anaesthesia
     Dosage: UNK
     Route: 042
     Dates: start: 202010, end: 202010
  7. PERFALGAN [Concomitant]
     Active Substance: ACETAMINOPHEN
     Indication: General anaesthesia
     Dosage: UNK
     Route: 042
     Dates: start: 202010, end: 202010
  8. PERFALGAN [Concomitant]
     Active Substance: ACETAMINOPHEN
     Indication: General anaesthesia
     Dosage: UNK
     Route: 042
     Dates: start: 202010, end: 202010
  9. TRANEXAMIC ACID [Suspect]
     Active Substance: TRANEXAMIC ACID
     Indication: General anaesthesia
     Dosage: UNK
     Route: 042
     Dates: start: 202010, end: 202010
  10. TRANEXAMIC ACID [Suspect]
     Active Substance: TRANEXAMIC ACID
     Indication: General anaesthesia
     Dosage: UNK
     Route: 042
     Dates: start: 202010, end: 202010
  11. TRANEXAMIC ACID [Suspect]
     Active Substance: TRANEXAMIC ACID
     Indication: General anaesthesia
     Dosage: UNK
     Route: 042
     Dates: start: 202010, end: 202010
  12. TRANEXAMIC ACID [Suspect]
     Active Substance: TRANEXAMIC ACID
     Indication: General anaesthesia
     Dosage: UNK
     Route: 042
     Dates: start: 202010, end: 202010
  13. DIPRIVAN [Suspect]
     Active Substance: PROPOFOL
     Indication: General anaesthesia
     Dosage: UNK
     Route: 042
     Dates: start: 202010, end: 202010
  14. DIPRIVAN [Suspect]
     Active Substance: PROPOFOL
     Indication: General anaesthesia
     Dosage: UNK
     Route: 042
     Dates: start: 202010, end: 202010
  15. DIPRIVAN [Suspect]
     Active Substance: PROPOFOL
     Indication: General anaesthesia
     Dosage: UNK
     Route: 042
     Dates: start: 202010, end: 202010
  16. DIPRIVAN [Suspect]
     Active Substance: PROPOFOL
     Indication: General anaesthesia
     Dosage: UNK
     Route: 042
     Dates: start: 202010, end: 202010
  17. KETAMINE [Suspect]
     Active Substance: KETAMINE
     Indication: General anaesthesia
     Dosage: UNK
     Route: 042
     Dates: start: 202010, end: 202010
  18. KETAMINE [Suspect]
     Active Substance: KETAMINE
     Indication: General anaesthesia
     Dosage: UNK
     Route: 042
     Dates: start: 202010, end: 202010
  19. KETAMINE [Suspect]
     Active Substance: KETAMINE
     Indication: General anaesthesia
     Dosage: UNK
     Route: 042
     Dates: start: 202010, end: 202010
  20. KETAMINE [Suspect]
     Active Substance: KETAMINE
     Indication: General anaesthesia
     Dosage: UNK
     Route: 042
     Dates: start: 202010, end: 202010
  21. CEFUROXIME [Suspect]
     Active Substance: CEFUROXIME
     Indication: General anaesthesia
     Dosage: UNK
     Route: 042
     Dates: start: 202010, end: 202010
  22. CEFUROXIME [Suspect]
     Active Substance: CEFUROXIME
     Indication: General anaesthesia
     Dosage: UNK
     Route: 042
     Dates: start: 202010, end: 202010
  23. CEFUROXIME [Suspect]
     Active Substance: CEFUROXIME
     Indication: General anaesthesia
     Dosage: UNK
     Route: 042
     Dates: start: 202010, end: 202010
  24. CEFUROXIME [Suspect]
     Active Substance: CEFUROXIME
     Indication: General anaesthesia
     Dosage: UNK
     Route: 042
     Dates: start: 202010, end: 202010
  25. XYLOCAINE [Concomitant]
     Active Substance: LIDOCAINE HYDROCHLORIDE
     Indication: General anaesthesia
     Dosage: UNK
     Route: 042
     Dates: start: 202010, end: 202010
  26. XYLOCAINE [Concomitant]
     Active Substance: LIDOCAINE HYDROCHLORIDE
     Indication: General anaesthesia
     Dosage: UNK
     Route: 042
     Dates: start: 202010, end: 202010
  27. XYLOCAINE [Concomitant]
     Active Substance: LIDOCAINE HYDROCHLORIDE
     Indication: General anaesthesia
     Dosage: UNK
     Route: 042
     Dates: start: 202010, end: 202010
  28. XYLOCAINE [Concomitant]
     Active Substance: LIDOCAINE HYDROCHLORIDE
     Indication: General anaesthesia
     Dosage: UNK
     Route: 042
     Dates: start: 202010, end: 202010
  29. SUFENTANIL CITRATE [Suspect]
     Active Substance: SUFENTANIL CITRATE
     Indication: General anaesthesia
     Dosage: UNK
     Route: 042
     Dates: start: 202010, end: 202010
  30. SUFENTANIL CITRATE [Suspect]
     Active Substance: SUFENTANIL CITRATE
     Indication: General anaesthesia
     Dosage: UNK
     Route: 042
     Dates: start: 202010, end: 202010
  31. SUFENTANIL CITRATE [Suspect]
     Active Substance: SUFENTANIL CITRATE
     Indication: General anaesthesia
     Dosage: UNK
     Route: 042
     Dates: start: 202010, end: 202010
  32. SUFENTANIL CITRATE [Suspect]
     Active Substance: SUFENTANIL CITRATE
     Indication: General anaesthesia
     Dosage: UNK
     Route: 042
     Dates: start: 202010, end: 202010
  33. ACUPAN [Suspect]
     Active Substance: NEFOPAM HYDROCHLORIDE
     Indication: General anaesthesia
     Dosage: UNK
     Route: 042
     Dates: start: 202010, end: 202010
  34. ACUPAN [Suspect]
     Active Substance: NEFOPAM HYDROCHLORIDE
     Indication: General anaesthesia
     Dosage: UNK
     Route: 042
     Dates: start: 202010, end: 202010
  35. ACUPAN [Suspect]
     Active Substance: NEFOPAM HYDROCHLORIDE
     Indication: General anaesthesia
     Dosage: UNK
     Route: 042
     Dates: start: 202010, end: 202010
  36. ACUPAN [Suspect]
     Active Substance: NEFOPAM HYDROCHLORIDE
     Indication: General anaesthesia
     Dosage: UNK
     Route: 042
     Dates: start: 202010, end: 202010
  37. ATRACURIUM [Suspect]
     Active Substance: ATRACURIUM
     Indication: Product used for unknown indication
     Route: 065
  38. DEXAMETHASONE [Suspect]
     Active Substance: DEXAMETHASONE
     Indication: General anaesthesia
     Dosage: UNK
     Route: 042
     Dates: start: 202010, end: 202011
  39. DEXAMETHASONE [Suspect]
     Active Substance: DEXAMETHASONE
     Indication: General anaesthesia
     Dosage: UNK
     Route: 042
     Dates: start: 202010, end: 202011
  40. DEXAMETHASONE [Suspect]
     Active Substance: DEXAMETHASONE
     Indication: General anaesthesia
     Dosage: UNK
     Route: 042
     Dates: start: 202010, end: 202011
  41. DEXAMETHASONE [Suspect]
     Active Substance: DEXAMETHASONE
     Indication: General anaesthesia
     Dosage: UNK
     Route: 042
     Dates: start: 202010, end: 202011

REACTIONS (2)
  - Erythema [Recovered/Resolved]
  - Hypotension [Recovered/Resolved]

NARRATIVE: CASE EVENT DATE: 20201001
